FAERS Safety Report 20495416 (Version 1)
Quarter: 2022Q1

REPORT INFORMATION
  Report Type: Spontaneous
  Country: None (occurrence: CA)
  Receive Date: 20220221
  Receipt Date: 20220221
  Transmission Date: 20220423
  Serious: No
  Sender: FDA-Public Use
  Company Number: CA-HILL DERMACEUTICALS, INC.-2126058

PATIENT
  Age: 65 Year
  Sex: Male

DRUGS (1)
  1. DERMOTIC [Suspect]
     Active Substance: FLUOCINOLONE ACETONIDE
     Indication: Eczema
     Route: 061
     Dates: start: 20210104, end: 20210713

REACTIONS (3)
  - Ear infection [Recovering/Resolving]
  - Otorrhoea [Recovered/Resolved]
  - Deafness [Unknown]

NARRATIVE: CASE EVENT DATE: 20210707
